FAERS Safety Report 25611463 (Version 3)
Quarter: 2025Q3

REPORT INFORMATION
  Report Type: Spontaneous
  Country: US (occurrence: US)
  Receive Date: 20250728
  Receipt Date: 20250922
  Transmission Date: 20251020
  Serious: No
  Sender: IPSEN BIOPHARMACEUTICALS, INC.
  Company Number: US-IPSEN Group, Research and Development-2025-17928

PATIENT
  Sex: Female

DRUGS (4)
  1. IQIRVO [Suspect]
     Active Substance: ELAFIBRANOR
     Indication: Primary biliary cholangitis
     Dosage: ONGOING?LOT NUMBER - M1001M1?EXPIRY DATE - 30-APR-2026
     Route: 048
     Dates: start: 20250626
  2. IQIRVO [Suspect]
     Active Substance: ELAFIBRANOR
     Indication: Hyperthyroidism
  3. IQIRVO [Suspect]
     Active Substance: ELAFIBRANOR
     Indication: Off label use
  4. LEVOTHYROXINE [Concomitant]
     Active Substance: LEVOTHYROXINE

REACTIONS (5)
  - Pain [Unknown]
  - Product dose omission issue [Unknown]
  - Off label use [Unknown]
  - Pain [Not Recovered/Not Resolved]
  - Fatigue [Unknown]
